FAERS Safety Report 10097436 (Version 1)
Quarter: 2014Q2

REPORT INFORMATION
  Report Type: Report from Study
  Country: US (occurrence: US)
  Receive Date: 20140423
  Receipt Date: 20140423
  Transmission Date: 20141212
  Serious: Yes (Hospitalization, Other)
  Sender: FDA-Public Use
  Company Number: US-BAXTER-2014BAX019604

PATIENT
  Sex: Male

DRUGS (1)
  1. GAMMAGARD S/D [Suspect]
     Indication: PRODUCT USED FOR UNKNOWN INDICATION
     Route: 042
     Dates: start: 2003

REACTIONS (5)
  - Transient ischaemic attack [Not Recovered/Not Resolved]
  - Chest pain [Unknown]
  - Chest pain [Unknown]
  - Hyperhidrosis [Unknown]
  - Blood pressure increased [Unknown]
